FAERS Safety Report 4589214-8 (Version None)
Quarter: 2005Q1

REPORT INFORMATION
  Report Type: 
  Country: None (occurrence: None)
  Receive Date: 20050214
  Receipt Date: 20050214
  Transmission Date: 20050727
  Serious: Yes (Other)
  Sender: FDA-Public Use
  Company Number: None

PATIENT
  Age: 66 Year
  Sex: Male
  Weight: 97 kg

DRUGS (16)
  1. ZOLPIDEM 5 MG [Suspect]
     Indication: CELLULITIS
     Dosage: AT BEDTIME PRN
     Dates: start: 20050208
  2. ZOLPIDEM 5 MG [Suspect]
     Indication: SLEEP DISORDER
     Dosage: AT BEDTIME PRN
     Dates: start: 20050208
  3. NORVASC [Concomitant]
  4. TENORMIN [Concomitant]
  5. PERCOCET [Concomitant]
  6. METFORMIN [Concomitant]
  7. INSULIN [Concomitant]
  8. ASPIRIN [Concomitant]
  9. TYLENOL (CAPLET) [Concomitant]
  10. ANCEF [Concomitant]
  11. LOVENOX [Concomitant]
  12. GLUCOTROL [Concomitant]
  13. MORPHINE [Concomitant]
  14. PROTONIX [Concomitant]
  15. MAABE [Concomitant]
  16. PHENERGAN [Concomitant]

REACTIONS (2)
  - CONFUSIONAL STATE [None]
  - DISORIENTATION [None]
